FAERS Safety Report 5408532-4 (Version None)
Quarter: 2007Q3

REPORT INFORMATION
  Report Type: 
  Country: None (occurrence: None)
  Receive Date: 20070808
  Receipt Date: 20070724
  Transmission Date: 20080115
  Serious: Yes (Hospitalization, Other)
  Sender: FDA-Public Use
  Company Number: US-AMGEN-US235633

PATIENT
  Sex: Female

DRUGS (11)
  1. ENBREL [Suspect]
     Indication: PSORIATIC ARTHROPATHY
     Route: 058
     Dates: start: 20060901, end: 20070101
  2. PREDNISONE TAB [Concomitant]
     Route: 065
  3. SYNTHROID [Concomitant]
     Route: 065
  4. PROTONIX [Concomitant]
     Route: 065
  5. MIRALAX [Concomitant]
     Route: 065
  6. TYLENOL (CAPLET) [Concomitant]
  7. TOPRAL [Concomitant]
  8. DECADRON [Concomitant]
     Route: 047
  9. BENADRYL [Concomitant]
  10. ELOCON [Concomitant]
  11. WESTCORT [Concomitant]

REACTIONS (10)
  - BENIGN INTRACRANIAL HYPERTENSION [None]
  - BLADDER DISORDER [None]
  - DYSPEPSIA [None]
  - FUNGAL INFECTION [None]
  - GASTROINTESTINAL MOTILITY DISORDER [None]
  - HYPERVENTILATION [None]
  - LOCALISED INFECTION [None]
  - SINUSITIS [None]
  - STAPHYLOCOCCAL INFECTION [None]
  - URINARY TRACT INFECTION [None]
